FAERS Safety Report 25688237 (Version 1)
Quarter: 2025Q3

REPORT INFORMATION
  Report Type: Spontaneous
  Country: US (occurrence: US)
  Receive Date: 20250818
  Receipt Date: 20250818
  Transmission Date: 20251020
  Serious: No
  Sender: SANOFI AVENTIS
  Company Number: US-SA-2025SA238646

PATIENT
  Sex: Male

DRUGS (9)
  1. KEVZARA [Suspect]
     Active Substance: SARILUMAB
     Indication: Rheumatoid arthritis
     Dosage: 1 DF, QOW
     Route: 058
     Dates: start: 20231021
  2. AMLODIPINE [Concomitant]
     Active Substance: AMLODIPINE BESYLATE
  3. AZITHROMYCIN [Concomitant]
     Active Substance: AZITHROMYCIN
  4. BETAMETHASONE [Concomitant]
     Active Substance: BETAMETHASONE
  5. BUPROPION [Concomitant]
     Active Substance: BUPROPION
  6. CELECOXIB [Concomitant]
     Active Substance: CELECOXIB
  7. FEBUXOSTAT [Concomitant]
     Active Substance: FEBUXOSTAT
  8. LOSARTAN POTASSIUM [Concomitant]
     Active Substance: LOSARTAN POTASSIUM
  9. BUSPIRONE [Concomitant]
     Active Substance: BUSPIRONE HYDROCHLORIDE

REACTIONS (3)
  - Fatigue [Unknown]
  - Pain [Unknown]
  - Drug ineffective [Unknown]
